FAERS Safety Report 9147748 (Version 1)
Quarter: 2013Q1

REPORT INFORMATION
  Report Type: Spontaneous
  Country: US (occurrence: US)
  Receive Date: 20130307
  Receipt Date: 20130307
  Transmission Date: 20140127
  Serious: No
  Sender: FDA-Public Use
  Company Number: US-009507513-1303USA003116

PATIENT
  Age: 28 Year
  Sex: Female

DRUGS (2)
  1. AFRIN [Suspect]
     Indication: HYPERSENSITIVITY
     Dosage: UNK, UNKNOWN
     Route: 045
  2. AFRIN [Suspect]
     Indication: SINUS CONGESTION

REACTIONS (5)
  - Epistaxis [Unknown]
  - Dry throat [Unknown]
  - Burning sensation [Unknown]
  - Incorrect drug administration duration [Unknown]
  - Drug effect decreased [Unknown]
